FAERS Safety Report 18819720 (Version 2)
Quarter: 2021Q1

REPORT INFORMATION
  Report Type: Spontaneous
  Country: GB (occurrence: GB)
  Receive Date: 20210202
  Receipt Date: 20210203
  Transmission Date: 20210419
  Serious: Yes (Other)
  Sender: FDA-Public Use
  Company Number: GB-PFIZER INC-2021047776

PATIENT
  Age: 42 Year
  Sex: Female
  Weight: 97 kg

DRUGS (6)
  1. CIPROFLOXACIN HCL [Suspect]
     Active Substance: CIPROFLOXACIN HYDROCHLORIDE
     Dosage: 500 MG, 2X/DAY
     Dates: start: 20201231
  2. FLUCLOXACILLIN [Concomitant]
     Active Substance: FLUCLOXACILLIN
     Dosage: 1 DF, 4X/DAY (FORM ANTIBIOTIC)
     Dates: start: 20201222
  3. OTOMIZE [Concomitant]
     Dosage: 3 DROP, 3X/DAY
     Dates: start: 20201026, end: 20201109
  4. CO?AMOXICLAVE [Concomitant]
     Active Substance: AMOXICILLIN\CLAVULANATE POTASSIUM
     Dosage: 1 DF, 3X/DAY
     Dates: start: 20201207, end: 20201214
  5. GABAPENTIN. [Concomitant]
     Active Substance: GABAPENTIN
     Indication: NEURALGIA
     Dosage: 2 DF, 3X/DAY
     Dates: start: 20201124, end: 20201222
  6. GENTAMICIN. [Concomitant]
     Active Substance: GENTAMICIN
     Dosage: USE AS DIRECTED
     Dates: start: 20201207, end: 20201212

REACTIONS (5)
  - Swelling [Recovered/Resolved]
  - Swelling face [Recovered/Resolved]
  - Wheezing [Recovered/Resolved]
  - Dyspnoea [Unknown]
  - Rash [Unknown]

NARRATIVE: CASE EVENT DATE: 20210104
